FAERS Safety Report 9490894 (Version 2)
Quarter: 2013Q3

REPORT INFORMATION
  Report Type: Spontaneous
  Country: US (occurrence: US)
  Receive Date: 20130830
  Receipt Date: 20130911
  Transmission Date: 20140515
  Serious: No
  Sender: FDA-Public Use
  Company Number: US-PFIZER INC-2013250773

PATIENT
  Age: 64 Year
  Sex: Female
  Weight: 90.7 kg

DRUGS (3)
  1. IBUPROFEN [Suspect]
     Indication: OSTEOARTHRITIS
     Dosage: EVERY 2 HOURS
     Dates: start: 20130814
  2. NAPROXEN SODIUM [Suspect]
     Indication: OSTEOARTHRITIS
     Dosage: EVERY 2 HOURS
     Dates: start: 20130814
  3. TYLENOL [Suspect]
     Indication: OSTEOARTHRITIS
     Dosage: EVERY 2 HOURS
     Dates: start: 20130814

REACTIONS (1)
  - Drug ineffective [Unknown]
